FAERS Safety Report 24590355 (Version 1)
Quarter: 2024Q4

REPORT INFORMATION
  Report Type: Spontaneous
  Country: GB (occurrence: GB)
  Receive Date: 20241107
  Receipt Date: 20241107
  Transmission Date: 20250115
  Serious: Yes (Other)
  Sender: INSUD PHARMA
  Company Number: None

PATIENT
  Age: 76 Year
  Sex: Male
  Weight: 70 kg

DRUGS (1)
  1. LANSOPRAZOLE [Suspect]
     Active Substance: LANSOPRAZOLE
     Indication: Gastrooesophageal reflux disease
     Dosage: 30MG ONE ONCE DAILY
     Dates: start: 20240402, end: 20240530

REACTIONS (1)
  - Chronic fatigue syndrome [Recovered/Resolved]

NARRATIVE: CASE EVENT DATE: 20240430
